FAERS Safety Report 6197129-7 (Version None)
Quarter: 2009Q2

REPORT INFORMATION
  Report Type: 
  Country: None (occurrence: None)
  Receive Date: 20090518
  Receipt Date: 20090518
  Transmission Date: 20091009
  Serious: No
  Sender: FDA-Public Use
  Company Number: None

PATIENT
  Age: 40 Year
  Sex: Female
  Weight: 65.7716 kg

DRUGS (1)
  1. PROPOXYPHENE HCL W/ APAP [Suspect]
     Indication: PAIN
     Dosage: 1 TABLET EVERY 6 HOURS PO
     Route: 048
     Dates: start: 20090513, end: 20090516

REACTIONS (5)
  - AGITATION [None]
  - DEPRESSION [None]
  - DYSPNOEA [None]
  - MOOD SWINGS [None]
  - SUICIDAL IDEATION [None]
